FAERS Safety Report 8193807-9 (Version None)
Quarter: 2012Q1

REPORT INFORMATION
  Report Type: 
  Country: None (occurrence: None)
  Receive Date: 20120308
  Receipt Date: 20120306
  Transmission Date: 20120608
  Serious: Yes (Life-Threatening)
  Sender: FDA-Public Use
  Company Number: PHHY2012IT019293

PATIENT
  Sex: Male

DRUGS (4)
  1. NORVASC [Concomitant]
     Dosage: 10 MG, UNK
  2. AMOXICILLIN [Suspect]
     Indication: TOOTH ABSCESS
     Dosage: 2 G, UNK
     Dates: start: 20111207, end: 20111207
  3. VALSARTAN  AND HYDROCHLOROTHIAZIDE [Concomitant]
  4. ZOCOR [Concomitant]
     Dosage: 10 MG, UNK

REACTIONS (4)
  - ABDOMINAL RIGIDITY [None]
  - LOSS OF CONSCIOUSNESS [None]
  - RASH GENERALISED [None]
  - HYPOTENSION [None]
